FAERS Safety Report 21764913 (Version 1)
Quarter: 2022Q4

REPORT INFORMATION
  Report Type: Spontaneous
  Country: US (occurrence: US)
  Receive Date: 20221222
  Receipt Date: 20221222
  Transmission Date: 20230112
  Serious: Yes (Other)
  Sender: FDA-Public Use
  Company Number: US-RECKITT BENCKISER HEALTHCARE INT LIMITED-RB-105652-2022

PATIENT

DRUGS (1)
  1. MUCINEX INSTASOOTHE SORE THROAT PLUS PAIN RELIEF [Suspect]
     Active Substance: BENZOCAINE\MENTHOL
     Indication: Oropharyngeal pain
     Dosage: UNK
     Route: 048

REACTIONS (1)
  - Chemical burn of oral cavity [Unknown]
